FAERS Safety Report 9750050 (Version 3)
Quarter: 2015Q3

REPORT INFORMATION
  Report Type: Spontaneous
  Country: GB (occurrence: GB)
  Receive Date: 20131212
  Receipt Date: 20150730
  Transmission Date: 20151125
  Serious: No
  Sender: FDA-Public Use
  Company Number: GB-GILEAD-GB-CVT-090734

PATIENT
  Age: 88 Year
  Sex: Female

DRUGS (13)
  1. RANITIDINE                         /00550801/ [Concomitant]
  2. AMLODIPINE [Concomitant]
     Active Substance: AMLODIPINE BESYLATE
  3. RANEXA [Suspect]
     Active Substance: RANOLAZINE
     Indication: ANGINA PECTORIS
     Route: 048
     Dates: start: 200908
  4. ROSUVASTATIN [Concomitant]
     Active Substance: ROSUVASTATIN
  5. NICORANDIL [Concomitant]
     Active Substance: NICORANDIL
  6. FUROSEMIDE                         /00032601/ [Concomitant]
  7. CLOPIDOGREL                        /01220701/ [Concomitant]
  8. ASPIRIN                            /00002701/ [Concomitant]
     Active Substance: ASPIRIN
  9. TOLTERODINE [Concomitant]
     Active Substance: TOLTERODINE
  10. ISOSORBIDE MONONITRATE. [Concomitant]
     Active Substance: ISOSORBIDE MONONITRATE
  11. BISOPROLOL                         /00802601/ [Concomitant]
     Active Substance: BISOPROLOL
  12. RAMIPRIL                           /00885601/ [Concomitant]
  13. ALENDRONIC ACID [Concomitant]
     Active Substance: ALENDRONIC ACID

REACTIONS (3)
  - Malaise [Recovered/Resolved]
  - Asthenia [Recovered/Resolved]
  - Dizziness [Recovered/Resolved]
